FAERS Safety Report 18734656 (Version 1)
Quarter: 2021Q1

REPORT INFORMATION
  Report Type: Spontaneous
  Country: US (occurrence: US)
  Receive Date: 20210113
  Receipt Date: 20210113
  Transmission Date: 20210419
  Serious: Yes (Other)
  Sender: FDA-Public Use
  Company Number: US-DRREDDYS-USA/USA/21/0130845

PATIENT
  Age: 52 Year
  Sex: Male

DRUGS (1)
  1. SUMATRIPTAN SUCCINATE TABLETS [Suspect]
     Active Substance: SUMATRIPTAN SUCCINATE
     Indication: MIGRAINE
     Dosage: 8?10 TIMES PER MONTH

REACTIONS (3)
  - Chronic kidney disease [Recovering/Resolving]
  - Renal tubular injury [Recovering/Resolving]
  - Vascular injury [Recovering/Resolving]
